FAERS Safety Report 12561244 (Version 1)
Quarter: 2016Q3

REPORT INFORMATION
  Report Type: Spontaneous
  Country: CN (occurrence: CN)
  Receive Date: 20160715
  Receipt Date: 20160715
  Transmission Date: 20161109
  Serious: Yes (Other)
  Sender: FDA-Public Use
  Company Number: CN-PFIZER INC-2016334924

PATIENT
  Age: 28 Year
  Sex: Female
  Weight: 60 kg

DRUGS (1)
  1. ZITHROMAX [Suspect]
     Active Substance: AZITHROMYCIN DIHYDRATE
     Indication: INFECTION
     Dosage: 0.5 G, 1X/DAY
     Route: 041
     Dates: start: 20160210, end: 20160210

REACTIONS (4)
  - Discomfort [Recovering/Resolving]
  - Tremor [Recovering/Resolving]
  - Breast swelling [Unknown]
  - Breast pain [Unknown]

NARRATIVE: CASE EVENT DATE: 20160210
